FAERS Safety Report 4444923-6 (Version None)
Quarter: 2004Q3

REPORT INFORMATION
  Report Type: 
  Country: None (occurrence: None)
  Receive Date: 20040908
  Receipt Date: 20040908
  Transmission Date: 20050211
  Serious: Yes (Other)
  Sender: FDA-Public Use
  Company Number: None

PATIENT
  Age: 63 Year
  Sex: Male
  Weight: 152.9 kg

DRUGS (1)
  1. ROSIGLITAZONE MALEATE [Suspect]

REACTIONS (2)
  - NAUSEA [None]
  - VOMITING [None]
